FAERS Safety Report 5075208-5 (Version None)
Quarter: 2006Q3

REPORT INFORMATION
  Report Type: 
  Country: None (occurrence: None)
  Receive Date: 20060804
  Receipt Date: 20060720
  Transmission Date: 20061208
  Serious: No
  Sender: FDA-Public Use
  Company Number: US017229

PATIENT
  Age: 24 Month
  Sex: Female
  Weight: 5.45 kg

DRUGS (1)
  1. ACTIQ (SUGAR-FREE) [Suspect]
     Dates: start: 20041109, end: 20041109

REACTIONS (5)
  - ACCIDENTAL DRUG INTAKE BY CHILD [None]
  - LETHARGY [None]
  - SLUGGISHNESS [None]
  - SOMNOLENCE [None]
  - VOMITING [None]
